FAERS Safety Report 5219319-X (Version None)
Quarter: 2007Q1

REPORT INFORMATION
  Report Type: 
  Country: None (occurrence: None)
  Receive Date: 20070125
  Receipt Date: 20070116
  Transmission Date: 20070707
  Serious: Yes (Other)
  Sender: FDA-Public Use
  Company Number: PT-AMGEN-UK197079

PATIENT
  Sex: Female

DRUGS (6)
  1. NEULASTA [Suspect]
     Indication: NEUTROPENIA
     Route: 058
     Dates: start: 20060224, end: 20061013
  2. LAMIVUDINE [Concomitant]
     Route: 048
     Dates: start: 20050201
  3. RITONAVIR [Concomitant]
     Route: 048
     Dates: start: 20000501
  4. COTRIM [Concomitant]
     Route: 048
     Dates: start: 20050201
  5. FOSAMPRENAVIR [Concomitant]
     Route: 048
     Dates: start: 20060501
  6. TENOFOVIR DISOPROXIL FUMARAT [Concomitant]
     Route: 048
     Dates: start: 20050201

REACTIONS (4)
  - ASTHENIA [None]
  - DIZZINESS [None]
  - PALPITATIONS [None]
  - SCLERAL HYPERAEMIA [None]
